FAERS Safety Report 6974017-7 (Version None)
Quarter: 2010Q3

REPORT INFORMATION
  Report Type: 
  Country: None (occurrence: None)
  Receive Date: 20100907
  Receipt Date: 20100824
  Transmission Date: 20110219
  Serious: Yes (Hospitalization)
  Sender: FDA-Public Use
  Company Number: 018055

PATIENT
  Sex: Male

DRUGS (6)
  1. CERTOLIZUMAB PEGOL (CDP870) [Suspect]
     Indication: RHEUMATOID ARTHRITIS
     Dosage: (200 MG 1X/2 WEEKS SUBCUTANEOUS)
     Route: 058
  2. REBAMIPIDE [Concomitant]
  3. LOXOPROFEN SODIUM [Concomitant]
  4. ALENDRONATE SODIUM [Concomitant]
  5. PIOGLITAZONE HCL [Concomitant]
  6. AMLODIPINE BESYLATE [Concomitant]

REACTIONS (1)
  - PNEUMONIA [None]
